FAERS Safety Report 20789282 (Version 1)
Quarter: 2022Q2

REPORT INFORMATION
  Report Type: Spontaneous
  Country: US (occurrence: US)
  Receive Date: 20220505
  Receipt Date: 20220505
  Transmission Date: 20220721
  Serious: No
  Sender: FDA-Public Use
  Company Number: US-SA-SAC20220503000999

PATIENT
  Sex: Female

DRUGS (2)
  1. XYZAL ALLERGY 24HR [Suspect]
     Active Substance: LEVOCETIRIZINE DIHYDROCHLORIDE
     Indication: Seasonal allergy
     Dosage: UNK
     Route: 065
  2. ALLEGRA [LEVOCETIRIZINE DIHYDROCHLORIDE] [Concomitant]
     Dosage: UNK

REACTIONS (1)
  - Paranasal sinus discomfort [Unknown]
